FAERS Safety Report 7830269-2 (Version None)
Quarter: 2011Q4

REPORT INFORMATION
  Report Type: 
  Country: None (occurrence: None)
  Receive Date: 20111021
  Receipt Date: 20111014
  Transmission Date: 20120403
  Serious: Yes (Other)
  Sender: FDA-Public Use
  Company Number: US-SANOFI-AVENTIS-2011SA068298

PATIENT
  Sex: Male

DRUGS (5)
  1. PLAVIX [Suspect]
     Indication: STENT PLACEMENT
     Dates: start: 20050101
  2. HUMULIN R [Concomitant]
  3. GLIPIZIDE [Concomitant]
  4. ABILIFY [Concomitant]
  5. LANTUS [Concomitant]
     Dosage: DOSE:28 UNIT(S)
     Route: 058
     Dates: start: 20110101

REACTIONS (5)
  - VISUAL IMPAIRMENT [None]
  - INSOMNIA [None]
  - THIRST [None]
  - POST-TRAUMATIC STRESS DISORDER [None]
  - PHOTOPHOBIA [None]
